FAERS Safety Report 5901198-6 (Version None)
Quarter: 2008Q3

REPORT INFORMATION
  Report Type: 
  Country: None (occurrence: None)
  Receive Date: 20080929
  Receipt Date: 20080603
  Transmission Date: 20090109
  Serious: Yes (Hospitalization)
  Sender: FDA-Public Use
  Company Number: US-BRISTOL-MYERS SQUIBB COMPANY-14198204

PATIENT
  Age: 29 Year
  Sex: Female

DRUGS (27)
  1. ORENCIA [Suspect]
     Indication: RHEUMATOID ARTHRITIS
     Dosage: 1ST DOSE ON 17APR07,DIVIDED DOSE IN JUL07,250MG+250CC OF SALINE,02JUN08(1G)
     Route: 042
     Dates: start: 20080305
  2. BENADRYL [Concomitant]
     Indication: PREMEDICATION
     Route: 042
  3. PREDNISONE [Concomitant]
  4. DULOXETINE HCL [Concomitant]
  5. ESOMEPRAZOLE MAGNESIUM [Concomitant]
  6. FOLIC ACID [Concomitant]
  7. MAGNESIUM SULFATE [Concomitant]
  8. TIZANIDINE HCL [Concomitant]
  9. ROSUVASTATIN CALCIUM [Concomitant]
  10. LISINOPRIL [Concomitant]
  11. PREGABALIN [Concomitant]
  12. PIOGLITAZONE HCL [Concomitant]
  13. VERAPAMIL [Concomitant]
  14. MORPHINE SULFATE INJ [Concomitant]
  15. DOCUSATE SODIUM [Concomitant]
  16. SUCRALFATE [Concomitant]
  17. METOCLOPRAMIDE [Concomitant]
  18. ISOPHANE INSULIN [Concomitant]
  19. INSULIN [Concomitant]
  20. METHOTREXATE [Concomitant]
  21. ALENDRONATE SODIUM [Concomitant]
  22. HYDROCODONE TARTRATE+ACETAMINOPHEN [Concomitant]
  23. ONDANSETRON [Concomitant]
  24. FLUTICASONE PROPIONATE [Concomitant]
  25. SUMATRIPTAN SUCCINATE [Concomitant]
  26. TIZANIDINE HCL [Concomitant]
  27. METHYLPREDNISOLONE [Concomitant]
     Indication: PREMEDICATION

REACTIONS (4)
  - HYPOTENSION [None]
  - INFUSION RELATED REACTION [None]
  - MIGRAINE [None]
  - PRURITUS [None]
